FAERS Safety Report 17871243 (Version 60)
Quarter: 2022Q3

REPORT INFORMATION
  Report Type: Report from Study
  Country: US (occurrence: US)
  Receive Date: 20200608
  Receipt Date: 20220816
  Transmission Date: 20221027
  Serious: Yes (Death, Life-Threatening, Hospitalization, Other)
  Sender: FDA-Public Use
  Company Number: US-NOVARTISPH-NVSC2020US157765

PATIENT
  Age: 72 Year
  Sex: Female
  Weight: 48.435 kg

DRUGS (22)
  1. TREPROSTINIL [Suspect]
     Active Substance: TREPROSTINIL
     Indication: Pulmonary arterial hypertension
     Dosage: 66 NG/KG/MIN, CONT (CONC 1 MG/ML), SERIAL NUMBER: 365768
     Route: 042
     Dates: start: 20190911
  2. TREPROSTINIL [Suspect]
     Active Substance: TREPROSTINIL
     Dosage: UNK, (CONC 1 MG/ML)
     Route: 042
  3. TREPROSTINIL [Suspect]
     Active Substance: TREPROSTINIL
     Dosage: 66 NG/KG/MIN, CONT (CONC1 MG/ML)
     Route: 042
  4. TREPROSTINIL [Suspect]
     Active Substance: TREPROSTINIL
     Dosage: 66 NG/KG/MIN, CONT (CONC 1 MG/ML)
     Route: 042
  5. TREPROSTINIL [Suspect]
     Active Substance: TREPROSTINIL
     Dosage: 66 NG/KG/MIN, CONT (CONC 1 MG/ML)
     Route: 042
  6. TREPROSTINIL [Suspect]
     Active Substance: TREPROSTINIL
     Dosage: 66 NG/KG/MIN, CONT(CONC 5 MG/ML)
     Route: 042
  7. TREPROSTINIL [Suspect]
     Active Substance: TREPROSTINIL
     Dosage: 66 NG/KG/MIN, CONT (CONC 2.5 MG/ML)
     Route: 042
  8. TREPROSTINIL [Suspect]
     Active Substance: TREPROSTINIL
     Dosage: 66 NG/KG/MIN, CONT (CONC 1 MG/ML)
     Route: 042
  9. TREPROSTINIL [Suspect]
     Active Substance: TREPROSTINIL
     Dosage: 66 NG/KG/MIN, CONT (CONC 2.5 MG/ML)
     Route: 042
  10. TREPROSTINIL [Suspect]
     Active Substance: TREPROSTINIL
     Dosage: 70 NG/KG/MIN, CONT (CONC 1 MG/ML
     Route: 042
  11. TREPROSTINIL [Suspect]
     Active Substance: TREPROSTINIL
     Dosage: 70 NG/KG/MIN, CONT (CONC 2.5 MG/ML)
     Route: 042
  12. TREPROSTINIL [Suspect]
     Active Substance: TREPROSTINIL
     Dosage: 70 NG/KG/MIN, CONT (CONC 2.5 NG/ML)
     Route: 042
  13. TREPROSTINIL [Suspect]
     Active Substance: TREPROSTINIL
     Dosage: 70 NG/KG/MIN, CONT (CONC 10 MG/ML)
     Route: 042
  14. TREPROSTINIL [Suspect]
     Active Substance: TREPROSTINIL
     Dosage: 70 NG/KG/MIN, CONT (CONC 1 MG/ML)
     Route: 042
  15. RITUXAN [Suspect]
     Active Substance: RITUXIMAB
     Indication: Product used for unknown indication
     Dosage: UNK
     Route: 065
  16. IODINE [Suspect]
     Active Substance: IODINE
     Indication: Product used for unknown indication
     Dosage: UNK
     Route: 065
  17. REVATIO [Concomitant]
     Active Substance: SILDENAFIL CITRATE
     Indication: Product used for unknown indication
     Dosage: UNK
     Route: 065
  18. AMBRISENTAN [Concomitant]
     Active Substance: AMBRISENTAN
     Indication: Product used for unknown indication
     Dosage: UNK
     Route: 065
  19. NIFEDIPINE [Concomitant]
     Active Substance: NIFEDIPINE
     Indication: Product used for unknown indication
     Dosage: UNK
     Route: 065
  20. AMLODIPINE [Concomitant]
     Active Substance: AMLODIPINE BESYLATE
     Indication: Product used for unknown indication
     Dosage: UNK
     Route: 065
  21. LETAIRIS [Concomitant]
     Active Substance: AMBRISENTAN
     Indication: Product used for unknown indication
     Dosage: UNK
     Route: 065
  22. ZYRTEC [Concomitant]
     Active Substance: CETIRIZINE HYDROCHLORIDE
     Indication: Product used for unknown indication
     Dosage: UNK, BID
     Route: 065

REACTIONS (85)
  - COVID-19 [Fatal]
  - Pneumonia escherichia [Recovered/Resolved]
  - Dyspnoea [Unknown]
  - Endocarditis bacterial [Unknown]
  - Fall [Unknown]
  - Vasculitis [Unknown]
  - Infection [Unknown]
  - Rectal haemorrhage [Unknown]
  - Cardiac failure [Unknown]
  - Hypervolaemia [Unknown]
  - Fluid retention [Unknown]
  - Weight increased [Unknown]
  - Gastrointestinal haemorrhage [Unknown]
  - Hypophagia [Unknown]
  - Listless [Unknown]
  - Atrial fibrillation [Unknown]
  - Cardiogenic shock [Unknown]
  - Septic shock [Unknown]
  - Catheter site related reaction [Unknown]
  - Vascular device infection [Unknown]
  - Autoimmune lung disease [Unknown]
  - Immunodeficiency [Unknown]
  - Myocardial infarction [Unknown]
  - Thinking abnormal [Unknown]
  - Migraine [Unknown]
  - Cystitis [Unknown]
  - Blood glucose increased [Unknown]
  - Weight fluctuation [Unknown]
  - Seasonal allergy [Unknown]
  - Arthritis [Unknown]
  - Nerve injury [Unknown]
  - Pain [Unknown]
  - Malaise [Unknown]
  - Blood glucose abnormal [Unknown]
  - Cough [Unknown]
  - Anger [Unknown]
  - Stress [Unknown]
  - Bronchitis [Recovered/Resolved]
  - Nasopharyngitis [Unknown]
  - Pyrexia [Unknown]
  - Delusional disorder, unspecified type [Unknown]
  - Sinusitis [Unknown]
  - Sleep disorder [Unknown]
  - Skin exfoliation [Unknown]
  - Sensitive skin [Unknown]
  - Insomnia [Unknown]
  - Limb injury [Unknown]
  - Rotator cuff syndrome [Unknown]
  - Feeling abnormal [Unknown]
  - Musculoskeletal discomfort [Unknown]
  - Skin irritation [Unknown]
  - Scab [Unknown]
  - Balance disorder [Unknown]
  - Weight decreased [Unknown]
  - Hypersensitivity [Unknown]
  - Injury [Unknown]
  - Concussion [Unknown]
  - Hypoacusis [Unknown]
  - Visual impairment [Unknown]
  - Illness [Unknown]
  - Vision blurred [Unknown]
  - Oxygen consumption increased [Unknown]
  - Sedation complication [Unknown]
  - Confusional state [Unknown]
  - Decreased appetite [Unknown]
  - Head injury [Unknown]
  - Diarrhoea [Unknown]
  - Abdominal pain [Unknown]
  - Fatigue [Unknown]
  - Dizziness [Unknown]
  - Hypotension [Unknown]
  - Catheter site irritation [Unknown]
  - Catheter site pruritus [Recovered/Resolved]
  - Catheter site erythema [Recovering/Resolving]
  - Catheter site rash [Recovering/Resolving]
  - Injection site pain [Recovering/Resolving]
  - Injection site pruritus [Recovering/Resolving]
  - Injection site discharge [Recovering/Resolving]
  - Catheter site pain [Unknown]
  - Device ineffective [Unknown]
  - Device leakage [Unknown]
  - Device issue [Unknown]
  - Device alarm issue [Recovered/Resolved]
  - Device malfunction [Unknown]
  - Device occlusion [Unknown]

NARRATIVE: CASE EVENT DATE: 20210109
